FAERS Safety Report 7913328-5 (Version None)
Quarter: 2011Q4

REPORT INFORMATION
  Report Type: 
  Country: None (occurrence: None)
  Receive Date: 20111114
  Receipt Date: 20111101
  Transmission Date: 20120403
  Serious: Yes (Hospitalization)
  Sender: FDA-Public Use
  Company Number: JP-AMGEN-JPNSP2011059200

PATIENT
  Age: 59 Year
  Sex: Female

DRUGS (3)
  1. ALFAROL [Concomitant]
     Dosage: UNCERTAINTY
     Route: 048
     Dates: start: 20110801
  2. CINACALCET HYDROCHLORIDE [Suspect]
     Indication: HYPERPARATHYROIDISM SECONDARY
     Dosage: UNK
     Route: 048
     Dates: start: 20110801
  3. RENAGEL [Concomitant]
     Dosage: UNCERTAINTY
     Route: 048
     Dates: start: 20110801

REACTIONS (1)
  - LIVER DISORDER [None]
